FAERS Safety Report 15827607 (Version 2)
Quarter: 2019Q1

REPORT INFORMATION
  Report Type: Spontaneous
  Country: NL (occurrence: NL)
  Receive Date: 20190115
  Receipt Date: 20190131
  Transmission Date: 20190417
  Serious: Yes (Death)
  Sender: FDA-Public Use
  Company Number: NL-UNICHEM PHARMACEUTICALS (USA) INC-UCM201901-000005

PATIENT
  Age: 35 Year
  Sex: Female

DRUGS (10)
  1. SODIUM VALPROATE [Concomitant]
     Active Substance: VALPROATE SODIUM
     Indication: BIPOLAR DISORDER
  2. PALIPERIDONE. [Suspect]
     Active Substance: PALIPERIDONE
     Indication: BIPOLAR DISORDER
  3. RISPERIDONE. [Concomitant]
     Active Substance: RISPERIDONE
     Indication: BIPOLAR DISORDER
  4. LITHIUM. [Concomitant]
     Active Substance: LITHIUM
     Indication: BIPOLAR DISORDER
  5. LAMOTRIGINE. [Suspect]
     Active Substance: LAMOTRIGINE
     Indication: BIPOLAR DISORDER
  6. OLANZAPINE. [Concomitant]
     Active Substance: OLANZAPINE
     Indication: BIPOLAR DISORDER
  7. LAMOTRIGINE. [Suspect]
     Active Substance: LAMOTRIGINE
  8. ZOPICLONE [Concomitant]
     Active Substance: ZOPICLONE
     Indication: BIPOLAR DISORDER
  9. LURASIDONE [Concomitant]
     Active Substance: LURASIDONE
     Indication: BIPOLAR DISORDER
  10. LURASIDONE [Concomitant]
     Active Substance: LURASIDONE

REACTIONS (9)
  - Nausea [Not Recovered/Not Resolved]
  - Swelling [Not Recovered/Not Resolved]
  - Vomiting [Not Recovered/Not Resolved]
  - Hyponatraemia [Fatal]
  - Brain death [Not Recovered/Not Resolved]
  - Inappropriate antidiuretic hormone secretion [Fatal]
  - Epilepsy [Not Recovered/Not Resolved]
  - Thirst [Not Recovered/Not Resolved]
  - Coma [Not Recovered/Not Resolved]
